FAERS Safety Report 9246726 (Version 1)
Quarter: 2013Q2

REPORT INFORMATION
  Report Type: Spontaneous
  Country: ES (occurrence: GB)
  Receive Date: 20130422
  Receipt Date: 20130422
  Transmission Date: 20140414
  Serious: Yes (Disabling)
  Sender: FDA-Public Use
  Company Number: GB-FRI-1000044518

PATIENT
  Age: 75 Year
  Sex: Female
  Weight: 53 kg

DRUGS (15)
  1. ACLIDINIUM BROMIDE [Suspect]
     Dates: start: 20130215
  2. ADCAL [Concomitant]
     Dates: start: 20121203
  3. ANODESYN [Concomitant]
     Dates: start: 20130102
  4. CLOPIDOGREL [Concomitant]
     Dates: start: 20121211
  5. GAVISCON ADVANCE [Concomitant]
     Dates: start: 20130107, end: 20130301
  6. GLYCERYL TRINITRATE [Concomitant]
     Dates: start: 20121224, end: 20130121
  7. HYDROXYCHLOROQUINE SULPHATE [Concomitant]
     Dates: start: 20130125
  8. OMEPRAZOLE [Concomitant]
     Dates: start: 20121203
  9. SALBUTAMOL [Concomitant]
     Dates: start: 20130318
  10. SERETIDE [Concomitant]
     Dates: start: 20121203
  11. SLOZEM [Concomitant]
     Dates: start: 20121211
  12. SNO TEARS [Concomitant]
     Dates: start: 20130102
  13. TEMAZEPAM [Concomitant]
     Dates: start: 20121211, end: 20130319
  14. TIOTROPIUM [Concomitant]
     Dates: start: 20121203, end: 20130224
  15. CO-DYDRAMOL [Concomitant]
     Dates: start: 20121203, end: 20121231

REACTIONS (1)
  - Palpitations [Recovering/Resolving]
